FAERS Safety Report 7287481-3 (Version None)
Quarter: 2011Q1

REPORT INFORMATION
  Report Type: 
  Country: None (occurrence: None)
  Receive Date: 20110211
  Receipt Date: 20110208
  Transmission Date: 20110831
  Serious: Yes (Hospitalization)
  Sender: FDA-Public Use
  Company Number: KR-BRISTOL-MYERS SQUIBB COMPANY-15498231

PATIENT
  Age: 22 Year
  Sex: Female

DRUGS (7)
  1. NIFEDIPINE [Concomitant]
     Dates: start: 20080507, end: 20110118
  2. PREDNISOLONE [Suspect]
     Indication: SYSTEMIC LUPUS ERYTHEMATOSUS
     Dosage: INTERRUPTED ON 18JAN11
     Route: 048
     Dates: start: 20080412
  3. FAMOTIDINE [Concomitant]
     Dosage: STOPED ON 18JAN11, RESTARTED ON 31JAN2011
     Dates: start: 20080507
  4. ABATACEPT [Suspect]
     Indication: SYSTEMIC LUPUS ERYTHEMATOSUS
     Dosage: INTERRUPTED ON 29NOV10
     Route: 042
     Dates: start: 20090519
  5. SIMVASTATIN [Concomitant]
     Dosage: STOPED ON 18JAN11, RESTARTED ON 31JAN2011
     Dates: start: 20080507
  6. MYCOPHENOLATE MOFETIL [Suspect]
     Indication: SYSTEMIC LUPUS ERYTHEMATOSUS
  7. ATENOLOL [Concomitant]
     Dates: start: 20080507, end: 20110118

REACTIONS (1)
  - OSTEONECROSIS [None]
